FAERS Safety Report 4927124-4 (Version None)
Quarter: 2006Q1

REPORT INFORMATION
  Report Type: 
  Country: None (occurrence: None)
  Receive Date: 20060222
  Receipt Date: 20060207
  Transmission Date: 20060701
  Serious: Yes (Other)
  Sender: FDA-Public Use
  Company Number: 2006PV007989

PATIENT
  Age: 64 Year
  Sex: Female
  Weight: 96.1626 kg

DRUGS (11)
  1. BYETTA [Suspect]
     Indication: DIABETES MELLITUS NON-INSULIN-DEPENDENT
     Dosage: 10 MCG BID SC ; 5 MCG BID SC
     Route: 058
     Dates: start: 20060104, end: 20060101
  2. BYETTA [Suspect]
     Indication: DIABETES MELLITUS NON-INSULIN-DEPENDENT
     Dosage: 10 MCG BID SC ; 5 MCG BID SC
     Route: 058
     Dates: start: 20051207, end: 20060103
  3. BYETTA [Suspect]
     Indication: DIABETES MELLITUS NON-INSULIN-DEPENDENT
     Dosage: 10 MCG BID SC ; 5 MCG BID SC
     Route: 058
     Dates: start: 20060123
  4. ULTRAM [Concomitant]
  5. AMARYL [Concomitant]
  6. FOSAMAX [Concomitant]
  7. LISINOPRIL [Concomitant]
  8. AVANDIA [Concomitant]
  9. FLEXERIL [Concomitant]
  10. NAPROXEN [Concomitant]
  11. HYDROCHLOROTHIAZIDE [Concomitant]

REACTIONS (5)
  - BLOOD GLUCOSE DECREASED [None]
  - DIZZINESS [None]
  - NAUSEA [None]
  - PANCREATITIS [None]
  - VOMITING [None]
